FAERS Safety Report 9313182 (Version 2)
Quarter: 2013Q3

REPORT INFORMATION
  Report Type: Spontaneous
  Country: JP (occurrence: JP)
  Receive Date: 20130528
  Receipt Date: 20130703
  Transmission Date: 20140515
  Serious: Yes (Other)
  Sender: FDA-Public Use
  Company Number: JP-ASTRAZENECA-2013SE35140

PATIENT
  Age: 90 Year
  Sex: Male

DRUGS (7)
  1. CASODEX [Suspect]
     Indication: PROSTATE CANCER
     Route: 048
  2. ZOLADEX LA [Suspect]
     Indication: PROSTATE CANCER
     Route: 058
  3. SPIRIVA [Concomitant]
     Route: 055
  4. ADOAIR [Concomitant]
     Route: 055
  5. THEODUR [Concomitant]
  6. NORVASC [Concomitant]
  7. WARFARIN [Concomitant]

REACTIONS (2)
  - Pneumothorax [Unknown]
  - Interstitial lung disease [Not Recovered/Not Resolved]
